FAERS Safety Report 21426022 (Version 1)
Quarter: 2022Q4

REPORT INFORMATION
  Report Type: Spontaneous
  Country: DE (occurrence: DE)
  Receive Date: 20221008
  Receipt Date: 20221008
  Transmission Date: 20230112
  Serious: Yes (Hospitalization)
  Sender: FDA-Public Use
  Company Number: DE-ADRED-08374-01

PATIENT
  Age: 88 Year
  Sex: Male
  Weight: 70 kg

DRUGS (12)
  1. DONEPEZIL [Suspect]
     Active Substance: DONEPEZIL
     Indication: Product used for unknown indication
     Dosage: 10 MILLIGRAM DAILY; 10 MG, 0-0-1-0
  2. ESCITALOPRAM [Suspect]
     Active Substance: ESCITALOPRAM OXALATE
     Indication: Product used for unknown indication
     Dosage: 5 MILLIGRAM DAILY; 5 MG, 1-0-0-0
  3. ASPIRIN [Suspect]
     Active Substance: ASPIRIN
     Indication: Product used for unknown indication
     Dosage: 100 MILLIGRAM DAILY; 100 MG, 0-1-0-0, ACETYLSALICYLSAURE
  4. DALTEPARIN [Suspect]
     Active Substance: DALTEPARIN
     Indication: Product used for unknown indication
     Dosage: 5000 IU (INTERNATIONAL UNIT) DAILY; 5000 IU/DAY , 0-0-1-0
  5. MIRTAZAPINE [Concomitant]
     Active Substance: MIRTAZAPINE
     Indication: Product used for unknown indication
     Dosage: 15 MILLIGRAM DAILY; 15 MG, 0-0-0-1
  6. SIMVASTATIN [Concomitant]
     Active Substance: SIMVASTATIN
     Indication: Product used for unknown indication
     Dosage: 40 MILLIGRAM DAILY; 40 MG, 0-0-1-0
  7. RAMIPRIL [Concomitant]
     Active Substance: RAMIPRIL
     Indication: Product used for unknown indication
     Dosage: 5 MILLIGRAM DAILY; 5 MG, 1-0-0-0
  8. macrogol/potassium chloride/sodium carbonate/sodium chloride [Concomitant]
     Indication: Product used for unknown indication
     Dosage: SCHEME, MACROGOL/KALIUMCHLORID/NATRIUMCARBONAT/NATRIUMCHLORID
  9. ALLOPURINOL [Concomitant]
     Active Substance: ALLOPURINOL
     Indication: Product used for unknown indication
     Dosage: 300 MILLIGRAM DAILY; 300 MG, 1-0-0-0
  10. FENTANYL [Concomitant]
     Active Substance: FENTANYL
     Indication: Product used for unknown indication
     Dosage: 12 UG, SCHEME
  11. METAMIZOLE [Concomitant]
     Active Substance: METAMIZOLE
     Indication: Product used for unknown indication
     Dosage: 2000 MILLIGRAM DAILY; 500 MG, 1-1-1-1
  12. MELPERONE [Concomitant]
     Active Substance: MELPERONE
     Indication: Product used for unknown indication
     Dosage: 15 ML DAILY; 5 ML, 1-1-1-0

REACTIONS (8)
  - Systemic infection [Unknown]
  - Confusional state [Unknown]
  - Hypotension [Unknown]
  - Haematemesis [Unknown]
  - Anaemia [Unknown]
  - Renal impairment [Unknown]
  - General physical health deterioration [Unknown]
  - Dementia [Unknown]
